FAERS Safety Report 9300490 (Version 1)
Quarter: 2013Q1

REPORT INFORMATION
  Report Type: Spontaneous
  Country: US (occurrence: None)
  Receive Date: 20130107
  Receipt Date: 20130107
  Transmission Date: 20140127
  Serious: Yes (Other)
  Sender: FDA-Public Use
  Company Number: PHEH2012US020501

PATIENT
  Age: 44 Year
  Sex: Male

DRUGS (5)
  1. GILENYA [Suspect]
     Indication: MULTIPLE SCLEROSIS
     Route: 048
     Dates: start: 20121015, end: 20121015
  2. BENZTROPINE MESYLATE (BENZATROPINE MESILATE) [Concomitant]
  3. LAMOTRIGINE (LAMOTRIGINE) [Concomitant]
  4. MIRTAZAPINE (MIRTAZAPINE) [Concomitant]
  5. RISPERIDONE (RISPERIDONE) [Concomitant]

REACTIONS (3)
  - Heart rate decreased [None]
  - Blood pressure decreased [None]
  - Electrocardiogram abnormal [None]
